FAERS Safety Report 6102277-3 (Version None)
Quarter: 2009Q1

REPORT INFORMATION
  Report Type: 
  Country: None (occurrence: None)
  Receive Date: 20090304
  Receipt Date: 20090219
  Transmission Date: 20090719
  Serious: Yes (Hospitalization)
  Sender: FDA-Public Use
  Company Number: IL-ROCHE-615965

PATIENT
  Age: 45 Year
  Sex: Male

DRUGS (1)
  1. MIRCERA [Suspect]
     Route: 058
     Dates: start: 20090111

REACTIONS (2)
  - ABDOMINAL PAIN [None]
  - RENAL HAEMORRHAGE [None]
